FAERS Safety Report 6142681-0 (Version None)
Quarter: 2009Q2

REPORT INFORMATION
  Report Type: 
  Country: None (occurrence: None)
  Receive Date: 20090403
  Receipt Date: 20090330
  Transmission Date: 20091009
  Serious: Yes (Other)
  Sender: FDA-Public Use
  Company Number: NL-JNJFOC-20090400719

PATIENT
  Sex: Male
  Weight: 99 kg

DRUGS (1)
  1. TRISPORAL OS DRANK [Suspect]
     Indication: FUNGAL INFECTION
     Route: 048

REACTIONS (7)
  - ABDOMINAL DISCOMFORT [None]
  - ADVERSE EVENT [None]
  - ASTHMA [None]
  - CARDIAC DISORDER [None]
  - FLANK PAIN [None]
  - HEADACHE [None]
  - PRURITUS [None]
